FAERS Safety Report 6987249-9 (Version None)
Quarter: 2010Q3

REPORT INFORMATION
  Report Type: 
  Country: None (occurrence: None)
  Receive Date: 20100827
  Receipt Date: 20100719
  Transmission Date: 20110219
  Serious: No
  Sender: FDA-Public Use
  Company Number: 015758

PATIENT
  Sex: Female

DRUGS (1)
  1. LACOSAMIDE [Suspect]
     Indication: CONVULSION
     Dosage: 150 MG BID ORAL
     Route: 048
     Dates: start: 20100329

REACTIONS (1)
  - DYSFUNCTIONAL UTERINE BLEEDING [None]
